FAERS Safety Report 4827749-0 (Version None)
Quarter: 2005Q4

REPORT INFORMATION
  Report Type: 
  Country: None (occurrence: None)
  Receive Date: 20051110
  Receipt Date: 20051103
  Transmission Date: 20060501
  Serious: Yes (Hospitalization)
  Sender: FDA-Public Use
  Company Number: TPA2005A01007

PATIENT
  Age: 73 Year
  Sex: Female

DRUGS (14)
  1. ACTOS [Suspect]
     Dosage: 30 MG, PER ORAL
     Route: 048
     Dates: start: 20050601, end: 20050912
  2. COREG [Concomitant]
  3. DIABETA [Concomitant]
  4. FOLIC ACID [Concomitant]
  5. ACETYLSALICYLIC ACID SRT [Concomitant]
  6. METOPROLOL TARTRATE [Concomitant]
  7. GLUCOPHAGE [Concomitant]
  8. NIACIN [Concomitant]
  9. SPIRONOLACTONE [Concomitant]
  10. ZOCOR [Concomitant]
  11. ZOLOFT [Concomitant]
  12. VERAPAMIL [Concomitant]
  13. PRINIVIL [Concomitant]
  14. METOCLOPRAMIDE [Concomitant]

REACTIONS (3)
  - CARDIAC FAILURE CONGESTIVE [None]
  - TRICUSPID VALVE INCOMPETENCE [None]
  - WEIGHT INCREASED [None]
